FAERS Safety Report 7950596-8 (Version None)
Quarter: 2011Q4

REPORT INFORMATION
  Report Type: 
  Country: None (occurrence: None)
  Receive Date: 20111130
  Receipt Date: 20111122
  Transmission Date: 20120403
  Serious: Yes (Other)
  Sender: FDA-Public Use
  Company Number: DE-ABBOTT-11P-062-0851535-00

PATIENT
  Sex: Male

DRUGS (1)
  1. HUMIRA [Suspect]
     Indication: PSORIASIS
     Dates: start: 20110426, end: 20110910

REACTIONS (7)
  - ALOPECIA [None]
  - WEIGHT DECREASED [None]
  - HAIR COLOUR CHANGES [None]
  - HAEMATEMESIS [None]
  - HAEMATOCHEZIA [None]
  - SKIN DISORDER [None]
  - DRUG WITHDRAWAL SYNDROME [None]
